FAERS Safety Report 6992142-1 (Version None)
Quarter: 2010Q3

REPORT INFORMATION
  Report Type: 
  Country: None (occurrence: None)
  Receive Date: 20100917
  Receipt Date: 20100903
  Transmission Date: 20110219
  Serious: Yes (Other)
  Sender: FDA-Public Use
  Company Number: CN-SANOFI-AVENTIS-2010SA053269

PATIENT
  Age: 54 Year
  Sex: Female

DRUGS (4)
  1. ZOLPIDEM TARTRATE [Suspect]
     Route: 065
     Dates: start: 20090711
  2. VENLAFAXINE [Interacting]
     Indication: ANXIETY
     Route: 065
     Dates: start: 20090711
  3. BISOPROLOL [Concomitant]
     Indication: HYPERTENSION
     Route: 065
  4. ALL OTHER THERAPEUTIC PRODUCTS [Concomitant]
     Indication: HYPERTENSION
     Route: 065

REACTIONS (2)
  - DRUG INTERACTION [None]
  - HALLUCINATION, VISUAL [None]
